FAERS Safety Report 8476954-3 (Version None)
Quarter: 2012Q2

REPORT INFORMATION
  Report Type: 
  Country: None (occurrence: None)
  Receive Date: 20120629
  Receipt Date: 20120620
  Transmission Date: 20120825
  Serious: No
  Sender: FDA-Public Use
  Company Number: US-BIOGENIDEC-2012BI022393

PATIENT
  Age: 61 Year
  Sex: Female

DRUGS (2)
  1. REBIF [Concomitant]
     Dates: start: 20120501, end: 20120618
  2. TYSABRI [Suspect]
     Indication: MULTIPLE SCLEROSIS
     Route: 042
     Dates: start: 20061101, end: 20120402

REACTIONS (2)
  - ABDOMINAL PAIN [None]
  - CHEST PAIN [None]
